FAERS Safety Report 19449784 (Version 1)
Quarter: 2021Q2

REPORT INFORMATION
  Report Type: Spontaneous
  Country: JP (occurrence: JP)
  Receive Date: 20210622
  Receipt Date: 20210622
  Transmission Date: 20210717
  Serious: Yes (Other)
  Sender: FDA-Public Use
  Company Number: JP-TAKEDA-2021TUS038638

PATIENT
  Age: 10 Year
  Sex: Male

DRUGS (5)
  1. INTUNIV [Suspect]
     Active Substance: GUANFACINE HYDROCHLORIDE
     Dosage: 3 MILLIGRAM, QD
     Route: 048
     Dates: start: 20201221
  2. INTUNIV [Suspect]
     Active Substance: GUANFACINE HYDROCHLORIDE
     Dosage: 1 MILLIGRAM, QD
     Route: 048
     Dates: start: 202105, end: 20210610
  3. STRATTERA [Concomitant]
     Active Substance: ATOMOXETINE HYDROCHLORIDE
     Dosage: 40 MILLIGRAM, QD
  4. INTUNIV [Suspect]
     Active Substance: GUANFACINE HYDROCHLORIDE
     Dosage: 2 MILLIGRAM, QD
     Route: 048
     Dates: start: 20201019
  5. INTUNIV [Suspect]
     Active Substance: GUANFACINE HYDROCHLORIDE
     Indication: ATTENTION DEFICIT HYPERACTIVITY DISORDER
     Dosage: 1 MILLIGRAM, QD
     Route: 048
     Dates: start: 20200824

REACTIONS (2)
  - Decreased appetite [Unknown]
  - Hypothermia [Not Recovered/Not Resolved]

NARRATIVE: CASE EVENT DATE: 2021
